FAERS Safety Report 14123157 (Version 1)
Quarter: 2017Q4

REPORT INFORMATION
  Report Type: Report from Study
  Country: US (occurrence: US)
  Receive Date: 20171025
  Receipt Date: 20171025
  Transmission Date: 20180321
  Serious: Yes (Hospitalization, Other)
  Sender: FDA-Public Use
  Company Number: US-ROCHE-1958822

PATIENT
  Age: 36 Year
  Sex: Female
  Weight: 83.99 kg

DRUGS (9)
  1. ACETAMINOPHEN. [Concomitant]
     Active Substance: ACETAMINOPHEN
     Indication: JUVENILE IDIOPATHIC ARTHRITIS
     Route: 048
     Dates: start: 20170502
  2. ADALAT [Concomitant]
     Active Substance: NIFEDIPINE
     Route: 048
     Dates: start: 20170614, end: 20170622
  3. PROMETRIUM (UNITED STATES) [Concomitant]
     Dosage: FOR PREVENTION OF MISCARRIAGE
     Route: 048
     Dates: start: 20170530, end: 20170725
  4. TOCILIZUMAB. [Suspect]
     Active Substance: TOCILIZUMAB
     Indication: JUVENILE IDIOPATHIC ARTHRITIS
     Route: 042
     Dates: start: 20150701, end: 20170530
  5. BABY ASPIRIN [Concomitant]
     Active Substance: ASPIRIN
     Dosage: FOR PREVENTION OF MISCARRIAGE
     Route: 048
     Dates: start: 20170530, end: 20170725
  6. CELEBREX [Concomitant]
     Active Substance: CELECOXIB
     Indication: JUVENILE IDIOPATHIC ARTHRITIS
     Route: 048
     Dates: start: 20170502, end: 20170530
  7. ADALAT [Concomitant]
     Active Substance: NIFEDIPINE
     Indication: HYPERTENSION
     Route: 048
     Dates: start: 20170502, end: 20170613
  8. BABY ASPIRIN [Concomitant]
     Active Substance: ASPIRIN
     Route: 048
     Dates: start: 20170926
  9. PREDNISOLONE ACETATE. [Concomitant]
     Active Substance: PREDNISOLONE ACETATE
     Indication: UVEITIS
     Route: 048
     Dates: start: 20170901

REACTIONS (5)
  - Antiphospholipid syndrome [Unknown]
  - Subchorionic haematoma [Recovered/Resolved]
  - Maternal exposure during pregnancy [Unknown]
  - Fall [Unknown]
  - Gastrooesophageal reflux disease [Unknown]

NARRATIVE: CASE EVENT DATE: 20170522
